FAERS Safety Report 4955699-8 (Version None)
Quarter: 2006Q1

REPORT INFORMATION
  Report Type: 
  Country: None (occurrence: None)
  Receive Date: 20060328
  Receipt Date: 20060317
  Transmission Date: 20060701
  Serious: Yes (Hospitalization)
  Sender: FDA-Public Use
  Company Number: PHRM2006FR01096

PATIENT
  Age: 55 Year
  Sex: Female

DRUGS (4)
  1. METHOTREXATE [Concomitant]
     Indication: RHEUMATOID ARTHRITIS
     Dates: start: 20030101, end: 20050801
  2. VOLTARENE LP [Suspect]
     Indication: RHEUMATOID ARTHRITIS
     Dosage: 75 MG, QD
     Route: 048
     Dates: start: 20030101, end: 20051216
  3. DAFALGAN [Concomitant]
     Indication: RHEUMATOID ARTHRITIS
     Dosage: 6 DF/DAY
     Route: 048
  4. STILNOX [Concomitant]
     Indication: ANXIETY
     Dosage: 5 MG, QD
     Route: 048

REACTIONS (7)
  - APLASIA [None]
  - AUTOIMMUNE DISORDER [None]
  - HAEMOGLOBIN DECREASED [None]
  - NON-HODGKIN'S LYMPHOMA [None]
  - PANCYTOPENIA [None]
  - PLATELET COUNT DECREASED [None]
  - THERAPY NON-RESPONDER [None]
